FAERS Safety Report 10275809 (Version 1)
Quarter: 2014Q3

REPORT INFORMATION
  Report Type: Spontaneous
  Country: US (occurrence: None)
  Receive Date: 20140701
  Receipt Date: 20140701
  Transmission Date: 20150326
  Serious: Yes (Hospitalization, Other)
  Sender: FDA-Public Use
  Company Number: 2010S1004706

PATIENT
  Age: 46 Year
  Sex: Male

DRUGS (6)
  1. METOPROLOL (METOPROLOL SUCCINATE) [Concomitant]
  2. ALDACTAZIDE (SPIRONOLACTONE, HYDROCHLOROTHIAZIDE) [Concomitant]
  3. AMLODIPINE [Concomitant]
     Active Substance: AMLODIPINE BESYLATE
  4. LIPITOR [Concomitant]
     Active Substance: ATORVASTATIN CALCIUM
  5. PHOSPHO-SODA [Suspect]
     Active Substance: SODIUM PHOSPHATE, DIBASIC\SODIUM PHOSPHATE, MONOBASIC
     Indication: COLONOSCOPY
  6. DIOVAN [Concomitant]
     Active Substance: VALSARTAN

REACTIONS (5)
  - Injury [None]
  - Renal failure acute [None]
  - Chest pain [None]
  - Renal tubular necrosis [None]
  - Tubulointerstitial nephritis [None]

NARRATIVE: CASE EVENT DATE: 20091130
